FAERS Safety Report 7762146-X (Version None)
Quarter: 2011Q3

REPORT INFORMATION
  Report Type: 
  Country: None (occurrence: None)
  Receive Date: 20110920
  Receipt Date: 20110204
  Transmission Date: 20111222
  Serious: Yes (Hospitalization)
  Sender: FDA-Public Use
  Company Number: JP-ROCHE-758888

PATIENT
  Sex: Male
  Weight: 19.9 kg

DRUGS (4)
  1. ASVERIN [Concomitant]
     Dosage: AMOUNT 3
     Route: 048
  2. PERIACTIN [Concomitant]
     Dosage: AMOUNT 3
     Route: 048
  3. CYSTEN [Concomitant]
     Dosage: FORM: MINUTE GRAIN, AMOUNT 3
     Route: 048
  4. TAMIFLU [Suspect]
     Indication: INFLUENZA
     Route: 048
     Dates: start: 20110121, end: 20110122

REACTIONS (2)
  - ENCEPHALOPATHY [None]
  - ABNORMAL BEHAVIOUR [None]
